FAERS Safety Report 15276269 (Version 1)
Quarter: 2018Q3

REPORT INFORMATION
  Report Type: Spontaneous
  Country: US (occurrence: US)
  Receive Date: 20180728
  Receipt Date: 20180728
  Transmission Date: 20181010
  Serious: Yes (Other)
  Sender: FDA-Public Use
  Company Number: None

PATIENT
  Age: 69 Year
  Sex: Female

DRUGS (1)
  1. DAPTOMYCIN 500MG TEVA [Suspect]
     Active Substance: DAPTOMYCIN
     Indication: SEPSIS
     Dosage: 600MG Q24H IV
     Route: 042
     Dates: start: 20180714, end: 20180714

REACTIONS (4)
  - Lip swelling [None]
  - Thirst [None]
  - Hypoaesthesia oral [None]
  - Periorbital oedema [None]

NARRATIVE: CASE EVENT DATE: 20180714
